FAERS Safety Report 6991945-7 (Version None)
Quarter: 2010Q3

REPORT INFORMATION
  Report Type: 
  Country: None (occurrence: None)
  Receive Date: 20100917
  Receipt Date: 20100911
  Transmission Date: 20110219
  Serious: Yes (Hospitalization)
  Sender: FDA-Public Use
  Company Number: PHHO2010AR05966

PATIENT
  Sex: Male
  Weight: 74 kg

DRUGS (3)
  1. CERTICAN [Suspect]
     Indication: LIVER TRANSPLANT
     Dosage: UNK
     Route: 048
     Dates: start: 20100125, end: 20100416
  2. TACROLIMUS COMP-TAC+ [Suspect]
     Indication: LIVER TRANSPLANT
     Dosage: UNK
     Route: 048
     Dates: start: 20100125, end: 20100416
  3. DELTISONA [Concomitant]
     Indication: IMMUNOSUPPRESSION

REACTIONS (7)
  - BLOOD ALKALINE PHOSPHATASE INCREASED [None]
  - CANDIDIASIS [None]
  - GASTROINTESTINAL INFECTION [None]
  - HEPATIC ARTERY STENOSIS [None]
  - HEPATIC ARTERY THROMBOSIS [None]
  - PYREXIA [None]
  - SINUSITIS [None]
